FAERS Safety Report 7899472-X (Version None)
Quarter: 2011Q4

REPORT INFORMATION
  Report Type: 
  Country: None (occurrence: None)
  Receive Date: 20111107
  Receipt Date: 20110914
  Transmission Date: 20120403
  Serious: Yes (Hospitalization)
  Sender: FDA-Public Use
  Company Number: US-AMGEN-USASP2011047353

PATIENT
  Age: 44 Year
  Sex: Male
  Weight: 106.58 kg

DRUGS (3)
  1. ENBREL [Suspect]
     Indication: PRODUCT USED FOR UNKNOWN INDICATION
     Dosage: 50 MG, UNK
  2. OMEPRAZOLE [Concomitant]
     Dosage: 10 MG, UNK
  3. MULTI-VITAMIN [Concomitant]

REACTIONS (1)
  - ARTHRITIS INFECTIVE [None]
